FAERS Safety Report 7606014-2 (Version None)
Quarter: 2011Q3

REPORT INFORMATION
  Report Type: 
  Country: None (occurrence: None)
  Receive Date: 20110713
  Receipt Date: 20110630
  Transmission Date: 20111222
  Serious: Yes (Other)
  Sender: FDA-Public Use
  Company Number: PHFR2011GB03183

PATIENT
  Sex: Male

DRUGS (9)
  1. HYOSCINE [Concomitant]
     Indication: SALIVARY HYPERSECRETION
     Dosage: 300 UG, BID
     Route: 048
  2. SIMVASTATIN [Concomitant]
     Indication: GENERAL PHYSICAL CONDITION
     Dosage: 40 MG/DAY
     Route: 048
  3. CLOZAPINE [Suspect]
     Dosage: 350 MG/DAY
     Route: 048
     Dates: start: 20100701, end: 20100901
  4. CLOZAPINE [Suspect]
     Dosage: 450 MG/DAY
     Route: 048
  5. OMEPRAZOLE [Concomitant]
     Indication: GENERAL PHYSICAL CONDITION
     Dosage: 40 MG/DAY
     Route: 048
  6. CLOZAPINE [Suspect]
     Dosage: 400 MG/DAY
     Route: 048
  7. METFORMIN HCL [Concomitant]
     Indication: GENERAL PHYSICAL CONDITION
     Dosage: 2550 MG/DAY
     Route: 048
  8. CLOZAPINE [Suspect]
     Indication: SCHIZOPHRENIA
     Dosage: UNK
     Route: 048
     Dates: start: 20081024
  9. DOMPERIDONE [Concomitant]
     Indication: GENERAL PHYSICAL CONDITION
     Dosage: 30 MG/DAY
     Route: 048

REACTIONS (2)
  - ANTIPSYCHOTIC DRUG LEVEL BELOW THERAPEUTIC [None]
  - TRANSIENT ISCHAEMIC ATTACK [None]
